FAERS Safety Report 5959279-7 (Version None)
Quarter: 2008Q4

REPORT INFORMATION
  Report Type: 
  Country: None (occurrence: None)
  Receive Date: 20081120
  Receipt Date: 20081117
  Transmission Date: 20090506
  Serious: Yes (Hospitalization)
  Sender: FDA-Public Use
  Company Number: FR-BRISTOL-MYERS SQUIBB COMPANY-14411508

PATIENT
  Age: 40 Year
  Sex: Male

DRUGS (3)
  1. SUSTIVA [Suspect]
     Indication: HIV INFECTION
     Route: 048
     Dates: start: 20070201
  2. TRUVADA [Suspect]
     Indication: HIV INFECTION
     Route: 048
     Dates: start: 20070201
  3. DOXORUBICIN HCL [Suspect]
     Indication: KAPOSI'S SARCOMA
     Dosage: 1 DF = 1 INJECTION
     Route: 042
     Dates: start: 20050101

REACTIONS (1)
  - UVEITIS [None]
